FAERS Safety Report 8350212-X (Version None)
Quarter: 2012Q2

REPORT INFORMATION
  Report Type: 
  Country: None (occurrence: None)
  Receive Date: 20120510
  Receipt Date: 20120503
  Transmission Date: 20120825
  Serious: Yes (Hospitalization)
  Sender: FDA-Public Use
  Company Number: US-COVIDIEN/TYCO HEALTHCARE/MALLINCKRODT-T201201637

PATIENT
  Age: 39 Year
  Sex: Female

DRUGS (14)
  1. QUETIAPINE FUMARATE [Suspect]
     Dosage: UNK
  2. PROCHLORPERAZINE [Suspect]
  3. BUSPIRONE HCL [Suspect]
     Dosage: UNK
  4. PROMETHAZINE [Suspect]
  5. ZONISAMIDE [Concomitant]
  6. METFORMIN HCL [Concomitant]
  7. METHADOSE [Suspect]
     Indication: PELVIC PAIN
     Dosage: UNK
  8. TRIMETHOPRIM + SULFAMETHOXAZOLE [Concomitant]
     Dosage: UNK
  9. LEVOTHYROXINE SODIUM [Concomitant]
  10. CITALOPRAM HYDROBROMIDE [Suspect]
     Dosage: UNK
  11. AMITRIPTYLINE HCL [Suspect]
  12. PRAVASTATIN [Concomitant]
  13. MECLIZINE [Suspect]
  14. GABAPENTIN [Concomitant]

REACTIONS (2)
  - DRUG INTERACTION [None]
  - SEROTONIN SYNDROME [None]
